FAERS Safety Report 9371049 (Version 1)
Quarter: 2013Q2

REPORT INFORMATION
  Report Type: Spontaneous
  Country: FR (occurrence: FR)
  Receive Date: 20130627
  Receipt Date: 20130627
  Transmission Date: 20140414
  Serious: Yes (Disabling)
  Sender: FDA-Public Use
  Company Number: FR-B.I. PHARMACEUTICALS,INC./RIDGEFIELD-2013-FF-01740FF

PATIENT
  Age: 85 Year
  Sex: Female

DRUGS (6)
  1. PRADAXA [Suspect]
     Indication: ATRIAL FIBRILLATION
     Dosage: 220 MG
     Route: 048
     Dates: start: 20120614, end: 20130408
  2. ATACAND [Concomitant]
     Indication: HYPERTENSION
     Dosage: 32 MG
     Route: 048
  3. HYPERIUM [Concomitant]
     Indication: HYPERTENSION
     Dosage: 2 MG
     Route: 048
  4. BURINEX [Concomitant]
     Indication: HYPERTENSION
     Dosage: 2 MG
     Route: 048
  5. ALPRESS L.P. [Concomitant]
     Indication: HYPERTENSION
     Dosage: 10 MG
     Route: 048
  6. KERLONE [Concomitant]
     Indication: HYPERTENSION
     Dosage: 20 MG
     Route: 048

REACTIONS (3)
  - Purpura [Not Recovered/Not Resolved]
  - Oedema peripheral [Not Recovered/Not Resolved]
  - Pain in extremity [Not Recovered/Not Resolved]
